FAERS Safety Report 9360972 (Version 3)
Quarter: 2013Q3

REPORT INFORMATION
  Report Type: Spontaneous
  Country: BR (occurrence: BR)
  Receive Date: 20130621
  Receipt Date: 20130828
  Transmission Date: 20140515
  Serious: Yes (Life-Threatening, Other)
  Sender: FDA-Public Use
  Company Number: BR-PFIZER INC-2013185711

PATIENT
  Age: 61 Year
  Sex: Female
  Weight: 88 kg

DRUGS (10)
  1. FRONTAL [Suspect]
     Indication: ANXIETY
     Dosage: 0.5 MG, 1X/DAY
     Route: 048
     Dates: start: 2007
  2. FRONTAL [Suspect]
     Indication: DEPRESSION
     Dosage: 0.5 MG, 2X/DAY (IF NECESSARY)
     Route: 048
  3. FRONTAL [Suspect]
     Indication: INSOMNIA
     Dosage: ONE TABLET OF 1 MG, 1X/DAY
     Route: 048
  4. FRONTAL [Suspect]
     Indication: SLEEP DISORDER
  5. FRONTAL [Suspect]
     Indication: RELAXATION THERAPY
  6. CITALOPRAM [Concomitant]
     Indication: RELAXATION THERAPY
     Dosage: ONE TABLET OF 20 MG, 1X/DAY
     Dates: start: 20050618
  7. AMIODARONE [Concomitant]
     Dosage: UNK, 1X/DAY
  8. SIMVASTATIN [Concomitant]
     Dosage: UNK
  9. ESCITALOPRAM [Concomitant]
     Indication: CARDIAC DISORDER
     Dosage: 200 MG, IN THE MORNING
  10. ESCITALOPRAM [Concomitant]
     Dosage: 100 MG, AT NIGHT (ONLY WHEN NECESSARY)

REACTIONS (8)
  - Device malfunction [Unknown]
  - Syncope [Unknown]
  - Shock [Unknown]
  - Dyspnoea [Unknown]
  - Cardiac disorder [Unknown]
  - Arrhythmia [Unknown]
  - Tachycardia [Unknown]
  - Off label use [Not Recovered/Not Resolved]
